FAERS Safety Report 7972626-X (Version None)
Quarter: 2011Q4

REPORT INFORMATION
  Report Type: 
  Country: None (occurrence: None)
  Receive Date: 20111213
  Receipt Date: 20111202
  Transmission Date: 20120403
  Serious: Yes (Other)
  Sender: FDA-Public Use
  Company Number: FR-JNJFOC-20111202092

PATIENT
  Sex: Female

DRUGS (2)
  1. REMICADE [Suspect]
     Indication: CROHN'S DISEASE
     Route: 042
  2. CONTRACEPTIVE IMPLANT [Concomitant]
     Indication: CONTRACEPTION
     Route: 019

REACTIONS (2)
  - CERVIX CARCINOMA [None]
  - ARTHRALGIA [None]
